FAERS Safety Report 9746815 (Version 1)
Quarter: 2013Q4

REPORT INFORMATION
  Report Type: Spontaneous
  Country: GB (occurrence: GB)
  Receive Date: 20131211
  Receipt Date: 20131211
  Transmission Date: 20140711
  Serious: Yes (Life-Threatening, Other)
  Sender: FDA-Public Use
  Company Number: GB-ABBVIE-13P-167-1178453-00

PATIENT
  Age: 39 Year
  Sex: Male

DRUGS (2)
  1. SODIUM VALPROATE [Suspect]
     Indication: BIPOLAR DISORDER
     Dosage: AT BEDTIME
     Route: 048
     Dates: start: 20131029, end: 20131122
  2. QUETIAPINE [Concomitant]
     Indication: PRODUCT USED FOR UNKNOWN INDICATION

REACTIONS (2)
  - Suicidal ideation [Recovered/Resolved]
  - Suicidal behaviour [Recovered/Resolved]
